FAERS Safety Report 13340007 (Version 4)
Quarter: 2019Q1

REPORT INFORMATION
  Report Type: Spontaneous
  Country: US (occurrence: US)
  Receive Date: 20170316
  Receipt Date: 20190313
  Transmission Date: 20190417
  Serious: Yes (Other)
  Sender: FDA-Public Use
  Company Number: US-ROCHE-1902173

PATIENT
  Sex: Female

DRUGS (1)
  1. TAMIFLU [Suspect]
     Active Substance: OSELTAMIVIR PHOSPHATE
     Indication: ANTIVIRAL PROPHYLAXIS
     Dosage: FOR 10 DAYS
     Route: 048
     Dates: start: 20170301

REACTIONS (2)
  - Abortion threatened [Not Recovered/Not Resolved]
  - Maternal exposure during pregnancy [Unknown]
